FAERS Safety Report 23039116 (Version 1)
Quarter: 2023Q4

REPORT INFORMATION
  Report Type: Report from Study
  Country: US (occurrence: US)
  Receive Date: 20231006
  Receipt Date: 20231006
  Transmission Date: 20240109
  Serious: Yes (Hospitalization)
  Sender: FDA-Public Use
  Company Number: US-ABBVIE-5435453

PATIENT
  Sex: Female

DRUGS (14)
  1. HUMIRA [Suspect]
     Active Substance: ADALIMUMAB
     Indication: Rheumatoid arthritis
     Dosage: FORM STRENGTH: 40MG;
     Route: 058
     Dates: start: 20230724
  2. HUMIRA [Suspect]
     Active Substance: ADALIMUMAB
     Indication: Crohn^s disease
     Dosage: FORM STRENGTH: 40MG;
     Route: 058
     Dates: start: 2017, end: 2023
  3. FOLIC ACID [Concomitant]
     Active Substance: FOLIC ACID
     Indication: Product used for unknown indication
     Dosage: 1 TABLET; FORM STRENGTH: 800MG; FREQUENCY: IN THE MORNING
  4. VITAMIN B12 [Concomitant]
     Active Substance: CYANOCOBALAMIN
     Indication: Product used for unknown indication
  5. VALSARTAN [Concomitant]
     Active Substance: VALSARTAN
     Indication: Product used for unknown indication
     Dosage: 1 TABLET; FORM STRENGTH: 80MG
  6. TIZANIDINE [Concomitant]
     Active Substance: TIZANIDINE
     Indication: Product used for unknown indication
     Dosage: 1 TABLET; FORM STRENGTH: 40MG; FREQUENCY: IN THE MORNING
  7. VITAMIN D3 [Concomitant]
     Active Substance: CHOLECALCIFEROL
     Indication: Product used for unknown indication
     Dosage: FORM STRENGTH: 2000IU; FREQUENCY: IN THE MORNING
  8. FUROSEMIDE [Concomitant]
     Active Substance: FUROSEMIDE
     Indication: Product used for unknown indication
     Dosage: 1 TABLET; FORM STRENGTH: 40MG; FREQUENCY: IN THE MORNING
  9. HYDROXYZINE [Concomitant]
     Active Substance: HYDROXYZINE HYDROCHLORIDE
     Indication: Anxiety
     Dosage: FORM STRENGTH: 25 MG; AS NEEDED
  10. METHOTREXATE [Concomitant]
     Active Substance: METHOTREXATE
     Indication: Rheumatoid arthritis
     Dosage: FORM STRENGTH: 2.5MG
  11. PANTOPRAZOLE SODIUM [Concomitant]
     Active Substance: PANTOPRAZOLE SODIUM
     Indication: Product used for unknown indication
     Dosage: 1 TABLET; FORM STRENGTH:40MG; FREQUENCY: IN THE MORNING
  12. HYDROCODONE [Concomitant]
     Active Substance: HYDROCODONE
     Indication: Pain
     Dosage: 2 PILLS A DAY; FREQUENCY: AS NEEDED
  13. GABAPENTIN [Concomitant]
     Active Substance: GABAPENTIN
     Indication: Product used for unknown indication
     Dosage: TIME INTERVAL: 0.33333333 DAYS: 2 TABLET; FORM STRENGTH: 100MG
  14. MELATONIN [Concomitant]
     Active Substance: MELATONIN
     Indication: Product used for unknown indication
     Dosage: 1 TABLET; FORM STRENGTH: 10MG ; FREQUENCY: AT BED TIME

REACTIONS (13)
  - Respiratory syncytial virus infection [Recovered/Resolved]
  - Abdominal discomfort [Not Recovered/Not Resolved]
  - Mobility decreased [Recovered/Resolved]
  - Arthralgia [Not Recovered/Not Resolved]
  - Crohn^s disease [Not Recovered/Not Resolved]
  - Hypophagia [Recovered/Resolved]
  - Influenza [Recovered/Resolved]
  - Device issue [Unknown]
  - Loss of personal independence in daily activities [Recovered/Resolved]
  - Oxygen saturation decreased [Recovered/Resolved]
  - SARS-CoV-2 test positive [Recovered/Resolved]
  - Dyspnoea [Recovered/Resolved]
  - White blood cell count abnormal [Recovered/Resolved]

NARRATIVE: CASE EVENT DATE: 20230101
